FAERS Safety Report 20095082 (Version 1)
Quarter: 2021Q4

REPORT INFORMATION
  Report Type: Spontaneous
  Country: SE (occurrence: None)
  Receive Date: 20211122
  Receipt Date: 20211122
  Transmission Date: 20220303
  Serious: Yes (Hospitalization, Disabling)
  Sender: FDA-Public Use
  Company Number: None

PATIENT
  Age: 43 Year
  Sex: Female
  Weight: 72 kg

DRUGS (1)
  1. METHOTREXATE [Suspect]
     Active Substance: METHOTREXATE
     Indication: Granulomatosis with polyangiitis
     Dosage: 8-5 TABLETS
     Route: 048
     Dates: start: 20170606, end: 20210521

REACTIONS (15)
  - Alopecia [Recovered/Resolved]
  - Cough [Recovered/Resolved]
  - Ocular hyperaemia [Recovered/Resolved]
  - Bradyphrenia [Recovered/Resolved]
  - Lymphoma [Unknown]
  - Renal function test abnormal [Recovered/Resolved]
  - Eye swelling [Recovered/Resolved]
  - Rash [Recovered/Resolved]
  - Pneumonia [Recovered/Resolved]
  - Dyspnoea [Recovered/Resolved]
  - Eye pruritus [Unknown]
  - Muscular weakness [Unknown]
  - Rhinorrhoea [Unknown]
  - Fatigue [Unknown]
  - Product use in unapproved indication [Unknown]

NARRATIVE: CASE EVENT DATE: 20170101
